FAERS Safety Report 4540026-0 (Version None)
Quarter: 2004Q4

REPORT INFORMATION
  Report Type: 
  Country: None (occurrence: None)
  Receive Date: 20041223
  Receipt Date: 20041213
  Transmission Date: 20050328
  Serious: Yes (Death)
  Sender: FDA-Public Use
  Company Number: 200421117BWH

PATIENT

DRUGS (4)
  1. TRASYLOL [Suspect]
     Indication: AORTIC ANEURYSM REPAIR
     Dates: start: 20041119
  2. PROTAMINE SULFATE [Concomitant]
  3. RED BLOOD CELLS [Concomitant]
  4. FRESH FROZEN PLASMA [Concomitant]

REACTIONS (6)
  - DILATATION VENTRICULAR [None]
  - HAEMATOCRIT DECREASED [None]
  - POST PROCEDURAL COMPLICATION [None]
  - RESPIRATORY DISORDER [None]
  - SHOCK [None]
  - THROMBOSIS [None]
